FAERS Safety Report 7128729-5 (Version None)
Quarter: 2010Q4

REPORT INFORMATION
  Report Type: 
  Country: None (occurrence: None)
  Receive Date: 20101130
  Receipt Date: 20101119
  Transmission Date: 20110411
  Serious: Yes (Other)
  Sender: FDA-Public Use
  Company Number: GB-GENZYME-CAMP-1001151

PATIENT
  Sex: Male

DRUGS (2)
  1. CAMPATH [Suspect]
     Indication: MULTIPLE SCLEROSIS RELAPSE
     Dosage: UNK
     Route: 065
     Dates: start: 20090628, end: 20090702
  2. CAMPATH [Suspect]
     Dosage: UNK
     Route: 065
     Dates: start: 20100601, end: 20100601

REACTIONS (1)
  - CHONDROPATHY [None]
